FAERS Safety Report 8622284-6 (Version None)
Quarter: 2012Q3

REPORT INFORMATION
  Report Type: 
  Country: None (occurrence: None)
  Receive Date: 20120827
  Receipt Date: 20120815
  Transmission Date: 20120928
  Serious: Yes (Hospitalization)
  Sender: FDA-Public Use
  Company Number: CA-BIOGENIDEC-2012BI024477

PATIENT
  Age: 33 Year
  Sex: Female

DRUGS (2)
  1. KEPPRA [Concomitant]
     Indication: CONVULSION
     Route: 048
     Dates: start: 20120605
  2. TYSABRI [Suspect]
     Indication: RELAPSING-REMITTING MULTIPLE SCLEROSIS
     Route: 042
     Dates: start: 20100507

REACTIONS (1)
  - CONVULSION [None]
